FAERS Safety Report 5074641-5 (Version None)
Quarter: 2006Q3

REPORT INFORMATION
  Report Type: 
  Country: None (occurrence: None)
  Receive Date: 20060803
  Receipt Date: 20060731
  Transmission Date: 20061208
  Serious: Yes (Other)
  Sender: FDA-Public Use
  Company Number: C2006-200-810

PATIENT
  Sex: Female

DRUGS (1)
  1. CEFAZOLIN, 1G/10ML, SANDOZ [Suspect]

REACTIONS (3)
  - POST PROCEDURAL COMPLICATION [None]
  - PYREXIA [None]
  - THERAPEUTIC PRODUCT CONTAMINATION [None]
